FAERS Safety Report 6638606-1 (Version None)
Quarter: 2010Q1

REPORT INFORMATION
  Report Type: 
  Country: None (occurrence: None)
  Receive Date: 20100317
  Receipt Date: 20100308
  Transmission Date: 20100710
  Serious: Yes (Hospitalization, Other)
  Sender: FDA-Public Use
  Company Number: US-AMGEN-QUU371517

PATIENT
  Sex: Female
  Weight: 54.5 kg

DRUGS (3)
  1. ENBREL [Suspect]
     Indication: RHEUMATOID ARTHRITIS
     Route: 058
     Dates: start: 20050101
  2. PREDNISONE [Concomitant]
  3. PERCOCET [Concomitant]

REACTIONS (4)
  - COMPUTERISED TOMOGRAM THORAX ABNORMAL [None]
  - OESOPHAGEAL CARCINOMA [None]
  - PNEUMOTHORAX [None]
  - PROCEDURAL COMPLICATION [None]
